FAERS Safety Report 12975258 (Version 1)
Quarter: 2016Q4

REPORT INFORMATION
  Report Type: Spontaneous
  Country: US (occurrence: US)
  Receive Date: 20161123
  Receipt Date: 20161123
  Transmission Date: 20170207
  Serious: Yes (Disabling, Other)
  Sender: FDA-Public Use
  Company Number: None

PATIENT
  Age: 60 Year
  Sex: Male
  Weight: 99.9 kg

DRUGS (5)
  1. METFORMIN/GLIPISIDE [Concomitant]
  2. EQUATE LORATADINE [Concomitant]
  3. LISINOPRIL-HYDROCHLOROTHIAZIDE [Concomitant]
     Active Substance: HYDROCHLOROTHIAZIDE\LISINOPRIL
  4. TRULICITY [Suspect]
     Active Substance: DULAGLUTIDE
     Indication: TYPE 2 DIABETES MELLITUS
     Dosage: ?          QUANTITY:1 INJECTION(S);OTHER FREQUENCY:ONCE WEEKLY;?
     Route: 058
     Dates: start: 20161116, end: 20161123
  5. PRAVASTATIN. [Concomitant]
     Active Substance: PRAVASTATIN

REACTIONS (9)
  - Activities of daily living impaired [None]
  - Dizziness [None]
  - Gastrooesophageal reflux disease [None]
  - Impaired work ability [None]
  - Abdominal pain [None]
  - Asthenia [None]
  - Nausea [None]
  - Dry throat [None]
  - Dysphonia [None]

NARRATIVE: CASE EVENT DATE: 20161117
